FAERS Safety Report 22378779 (Version 1)
Quarter: 2023Q2

REPORT INFORMATION
  Report Type: Spontaneous
  Country: HU (occurrence: HU)
  Receive Date: 20230529
  Receipt Date: 20230529
  Transmission Date: 20230722
  Serious: Yes (Life-Threatening, Hospitalization, Other)
  Sender: FDA-Public Use
  Company Number: HU-ABBVIE-20K-076-3233543-00

PATIENT
  Age: 66 Year
  Sex: Female

DRUGS (4)
  1. METHOTREXATE [Suspect]
     Active Substance: METHOTREXATE
     Indication: Rheumatoid arthritis
     Dosage: UNK
  2. HUMIRA [Suspect]
     Active Substance: ADALIMUMAB
     Indication: Rheumatoid arthritis
     Dosage: 80 MG /MONTH
     Dates: start: 20181007, end: 20181108
  3. ASPIRIN [Suspect]
     Active Substance: ASPIRIN
     Indication: Anaemia
     Dosage: THE PATIENT TOOK ONLY ONE TABLET
     Dates: start: 201811, end: 201811
  4. ADALIMUMAB [Suspect]
     Active Substance: ADALIMUMAB
     Indication: Rheumatoid arthritis
     Dosage: 80 MILLIGRAM, BIMONTHLY (2 TIMES AT A DOSE OF 80 MG/ MONTH)

REACTIONS (15)
  - Dry gangrene [Recovered/Resolved with Sequelae]
  - Thrombocytosis [Unknown]
  - Anaemia [Unknown]
  - Eschar [Unknown]
  - Panniculitis [Recovered/Resolved with Sequelae]
  - Infection [Unknown]
  - Skin necrosis [Unknown]
  - Vomiting [Unknown]
  - Vascular injury [Unknown]
  - Pancytopenia [Unknown]
  - Vasculitis necrotising [Recovered/Resolved with Sequelae]
  - Rash papular [Unknown]
  - Necrosis [Unknown]
  - Septic shock [Not Recovered/Not Resolved]
  - Immunodeficiency [Unknown]

NARRATIVE: CASE EVENT DATE: 20181113
